FAERS Safety Report 8596476-9 (Version None)
Quarter: 2012Q3

REPORT INFORMATION
  Report Type: 
  Country: None (occurrence: None)
  Receive Date: 20120815
  Receipt Date: 20120810
  Transmission Date: 20120928
  Serious: Yes (Hospitalization)
  Sender: FDA-Public Use
  Company Number: DE-ACTELION-A-US2012-68109

PATIENT
  Age: 64 Year
  Sex: Male

DRUGS (11)
  1. VENTAVIS [Suspect]
     Indication: PULMONARY ARTERIAL HYPERTENSION
     Dosage: 5 ?G, Q4HRS
     Route: 055
     Dates: start: 20120611
  2. CLOPIDOGREL [Concomitant]
  3. LIPITOR [Concomitant]
  4. REVATIO [Concomitant]
  5. QUINAPRIL [Concomitant]
  6. SPIRONOLACTONE [Concomitant]
  7. ACETYLSALICYLIC ACID ALUMINIUM [Concomitant]
  8. PANTOZAL [Concomitant]
  9. ACENOCOUMAROL [Concomitant]
  10. METOPROLOL TARTRATE [Concomitant]
  11. SPIRIVA [Concomitant]

REACTIONS (8)
  - DYSPNOEA [None]
  - CHEST PAIN [None]
  - CORONARY ARTERY STENOSIS [None]
  - OEDEMA [None]
  - VISUAL IMPAIRMENT [None]
  - ANGIOPLASTY [None]
  - HEADACHE [None]
  - EYE PAIN [None]
